FAERS Safety Report 15179899 (Version 2)
Quarter: 2018Q3

REPORT INFORMATION
  Report Type: Report from Study
  Country: CZ (occurrence: CZ)
  Receive Date: 20180723
  Receipt Date: 20180727
  Transmission Date: 20181010
  Serious: Yes (Disabling)
  Sender: FDA-Public Use
  Company Number: PHHO2018CZ008288

PATIENT
  Age: 68 Year
  Sex: Female
  Weight: 98 kg

DRUGS (2)
  1. ACZ885 [Suspect]
     Active Substance: CANAKINUMAB
     Indication: CARDIOVASCULAR EVENT PROPHYLAXIS
     Dosage: 50 MG, QUARTERLY
     Route: 058
     Dates: start: 20170113
  2. ACZ885 [Suspect]
     Active Substance: CANAKINUMAB
     Indication: CARDIOVASCULAR EVENT PROPHYLAXIS
     Dosage: 1 DF, Q3MO
     Route: 058
     Dates: end: 20180430

REACTIONS (1)
  - Nasal cavity cancer [Not Recovered/Not Resolved]

NARRATIVE: CASE EVENT DATE: 20180530
